FAERS Safety Report 9191448 (Version 1)
Quarter: 2013Q1

REPORT INFORMATION
  Report Type: Spontaneous
  Country: US (occurrence: US)
  Receive Date: 20130326
  Receipt Date: 20130326
  Transmission Date: 20140127
  Serious: No
  Sender: FDA-Public Use
  Company Number: US-009507513-1303USA011332

PATIENT
  Age: 19 Year
  Sex: Female
  Weight: 63.49 kg

DRUGS (1)
  1. NUVARING [Suspect]
     Indication: CONTRACEPTION
     Dosage: UNK, 1 RING FOR THREE WEEKS
     Route: 067
     Dates: start: 20130313

REACTIONS (3)
  - Burning sensation mucosal [Unknown]
  - Vulvovaginal discomfort [Unknown]
  - Haemorrhage [Unknown]
